FAERS Safety Report 26203303 (Version 1)
Quarter: 2025Q4

REPORT INFORMATION
  Report Type: Other
  Country: GB (occurrence: GB)
  Receive Date: 20251226
  Receipt Date: 20251226
  Transmission Date: 20260118
  Serious: Yes (Disabling)
  Sender: GLENMARK
  Company Number: None

PATIENT
  Age: 59 Year
  Sex: Female
  Weight: 114 kg

DRUGS (5)
  1. SOLIFENACIN SUCCINATE [Suspect]
     Active Substance: SOLIFENACIN SUCCINATE
     Indication: Product used for unknown indication
     Dosage: 5 MILLIGRAM, QD (TAKE ONE DAILY)
     Route: 065
     Dates: start: 20250530, end: 20251114
  2. NITROFURANTOIN [Concomitant]
     Active Substance: NITROFURANTOIN
     Indication: Ill-defined disorder
     Dosage: UNK UNK, BID (TO BE TAKEN TWICE DAILY)
     Route: 065
     Dates: start: 20251014, end: 20251021
  3. CLONAZEPAM [Concomitant]
     Active Substance: CLONAZEPAM
     Indication: Ill-defined disorder
     Dosage: UNK UNK, QD (ONE TO BE TAKEN AT NIGHT)
     Route: 065
     Dates: start: 20250313
  4. PROPRANOLOL [Concomitant]
     Active Substance: PROPRANOLOL HYDROCHLORIDE
     Indication: Ill-defined disorder
     Dosage: UNK (ONE TO BE TAKEN TWICE A DAY)
     Route: 065
     Dates: start: 20250422
  5. PREGABALIN [Concomitant]
     Active Substance: PREGABALIN
     Indication: Ill-defined disorder
     Dosage: 25 MILLIGRAM (TAKE ONE (25MG) CAPSULE IN THE MORNING AND TWO ...)
     Route: 065
     Dates: start: 20250909

REACTIONS (3)
  - Oedema [Recovered/Resolved]
  - Dysuria [Unknown]
  - Oedema peripheral [Unknown]
